FAERS Safety Report 8483884-X (Version None)
Quarter: 2012Q2

REPORT INFORMATION
  Report Type: 
  Country: None (occurrence: None)
  Receive Date: 20120627
  Receipt Date: 20120627
  Transmission Date: 20120825
  Serious: Yes (Other)
  Sender: FDA-Public Use
  Company Number: None

PATIENT
  Sex: Female
  Weight: 78.1548 kg

DRUGS (1)
  1. OMNITROPE [Suspect]
     Dosage: 2.1 MG FIVE TIME A WEEK SQ
     Route: 058

REACTIONS (2)
  - HOT FLUSH [None]
  - HEADACHE [None]
